FAERS Safety Report 6020342-6 (Version None)
Quarter: 2008Q4

REPORT INFORMATION
  Report Type: 
  Country: None (occurrence: None)
  Receive Date: 20081223
  Receipt Date: 20081223
  Transmission Date: 20090506
  Serious: No
  Sender: FDA-Public Use
  Company Number: None

PATIENT
  Age: 62 Year
  Sex: Female

DRUGS (2)
  1. ESTRING [Suspect]
     Indication: HORMONE REPLACEMENT THERAPY
     Dosage: INSERT RING INTO UPPER 1/3 OF VAGINAL VAULT-REMOVE AND REPLACE AFTER 90 DAYS
     Route: 067
  2. ESTRING [Suspect]
     Indication: VULVOVAGINAL DRYNESS
     Dosage: INSERT RING INTO UPPER 1/3 OF VAGINAL VAULT-REMOVE AND REPLACE AFTER 90 DAYS
     Route: 067

REACTIONS (3)
  - DEVICE FAILURE [None]
  - PRODUCT QUALITY ISSUE [None]
  - VULVOVAGINAL DRYNESS [None]
